FAERS Safety Report 8372483-6 (Version None)
Quarter: 2012Q2

REPORT INFORMATION
  Report Type: 
  Country: None (occurrence: None)
  Receive Date: 20120521
  Receipt Date: 20120514
  Transmission Date: 20120825
  Serious: Yes (Death)
  Sender: FDA-Public Use
  Company Number: DK-UCBSA-057435

PATIENT
  Sex: Male

DRUGS (1)
  1. VIMPAT [Suspect]

REACTIONS (1)
  - DEATH [None]
